FAERS Safety Report 7659692-6 (Version None)
Quarter: 2011Q3

REPORT INFORMATION
  Report Type: 
  Country: None (occurrence: None)
  Receive Date: 20110805
  Receipt Date: 20110727
  Transmission Date: 20111222
  Serious: Yes (Other)
  Sender: FDA-Public Use
  Company Number: CA-JNJFOC-20110800413

PATIENT
  Sex: Male
  Weight: 77.4 kg

DRUGS (5)
  1. MISOPROSTOL [Concomitant]
  2. REMICADE [Suspect]
     Indication: RHEUMATOID ARTHRITIS
     Route: 042
  3. NAPROSYN [Concomitant]
  4. PREDNISONE [Concomitant]
  5. METHOTREXATE [Concomitant]

REACTIONS (2)
  - COLITIS ULCERATIVE [None]
  - WEIGHT DECREASED [None]
